FAERS Safety Report 9361081 (Version 2)
Quarter: 2013Q3

REPORT INFORMATION
  Report Type: Spontaneous
  Country: US (occurrence: US)
  Receive Date: 20130621
  Receipt Date: 20130731
  Transmission Date: 20140515
  Serious: No
  Sender: FDA-Public Use
  Company Number: US-PFIZER INC-2013182459

PATIENT
  Sex: Male

DRUGS (5)
  1. FLAGYL [Suspect]
     Dosage: UNK
  2. LIPITOR [Suspect]
     Dosage: UNK
     Route: 048
  3. LODINE [Suspect]
     Dosage: UNK
  4. REMICADE [Suspect]
     Dosage: UNK
  5. ORENCIA [Suspect]
     Dosage: UNK

REACTIONS (1)
  - Drug hypersensitivity [Unknown]
